FAERS Safety Report 8717347 (Version 2)
Quarter: 2012Q4

REPORT INFORMATION
  Report Type: 
  Country: PR (occurrence: PR)
  Receive Date: 20120810
  Receipt Date: 20121126
  Transmission Date: 20130627
  Serious: Yes (Hospitalization)
  Sender: FDA-Public Use
  Company Number: PR-ABBOTT-12P-131-0940212-00

PATIENT
  Age: 64 None
  Sex: Female
  Weight: 89.89 kg

DRUGS (22)
  1. HUMIRA 40 MG/0.8 ML PEN [Suspect]
     Indication: RHEUMATOID ARTHRITIS
     Route: 058
     Dates: start: 201202, end: 20120525
  2. HUMIRA 40 MG/0.8 ML PEN [Suspect]
     Route: 058
     Dates: start: 20120615, end: 20120720
  3. HUMIRA 40 MG/0.8 ML PEN [Suspect]
     Route: 058
  4. CELEBREX [Concomitant]
     Indication: LUMBAR SPINAL STENOSIS
     Route: 048
     Dates: end: 201208
  5. IMURAN [Concomitant]
     Indication: LUMBAR SPINAL STENOSIS
     Route: 048
  6. NOVOLOG [Concomitant]
     Indication: DIABETES MELLITUS
     Route: 058
  7. LEVEMIR [Concomitant]
     Indication: DIABETES MELLITUS
     Dosage: at bedtime
     Route: 058
  8. LASIX [Concomitant]
     Indication: HYPERTENSION
     Route: 048
  9. DIGOXIN [Concomitant]
     Indication: HYPERTENSION
     Route: 048
  10. LOSARTAN [Concomitant]
     Indication: HYPERTENSION
     Route: 048
  11. VERAPAMIL [Concomitant]
     Indication: ARRHYTHMIA
     Dosage: In AM
     Route: 048
  12. VERAPAMIL [Concomitant]
     Dosage: In PM
  13. TAMBOCOR [Concomitant]
     Indication: ARRHYTHMIA
     Route: 048
  14. XARELTO [Concomitant]
     Indication: CEREBROVASCULAR ACCIDENT
     Route: 048
  15. PREDNISONE [Concomitant]
     Indication: PULMONARY FIBROSIS
     Route: 048
  16. PULMICORT [Concomitant]
     Indication: PULMONARY FIBROSIS
     Dosage: Every 4 hours PRN; oral inhalation
     Route: 048
  17. ATROVENT [Concomitant]
     Indication: PULMONARY FIBROSIS
     Dosage: Every 6 hour PRN, oral inhalation
     Route: 048
  18. VITAMIN B 12 [Concomitant]
     Indication: CEREBROVASCULAR ACCIDENT
     Route: 048
  19. VITAMIN D [Concomitant]
     Indication: PRODUCT USED FOR UNKNOWN INDICATION
     Route: 048
     Dates: end: 20120622
  20. ADVAIR [Concomitant]
     Indication: PNEUMONIA
     Dosage: oral inhalation
  21. SPIRIVA [Concomitant]
     Indication: PRODUCT USED FOR UNKNOWN INDICATION
     Dosage: oral inhalation
  22. TORADOL [Concomitant]
     Indication: PAIN
     Route: 030
     Dates: start: 2011

REACTIONS (16)
  - Lung disorder [Unknown]
  - Fatigue [Unknown]
  - Pneumonia [Unknown]
  - Herpes zoster [Recovering/Resolving]
  - Spinal compression fracture [Not Recovered/Not Resolved]
  - Dyspnoea [Unknown]
  - Pleuritic pain [Unknown]
  - Lumbar spinal stenosis [Not Recovered/Not Resolved]
  - Pain in extremity [Unknown]
  - Oedema peripheral [Unknown]
  - Joint swelling [Unknown]
  - Gait disturbance [Unknown]
  - Drug ineffective [Unknown]
  - Pain in extremity [Unknown]
  - Arthralgia [Unknown]
  - Arthralgia [Unknown]
